FAERS Safety Report 22003723 (Version 1)
Quarter: 2023Q1

REPORT INFORMATION
  Report Type: Other
  Country: GB (occurrence: GB)
  Receive Date: 20230217
  Receipt Date: 20230217
  Transmission Date: 20230417
  Serious: Yes (Congenital Anomaly, Other)
  Sender: FDA-Public Use
  Company Number: GB-CELLTRION INC.-2023GB003219

PATIENT

DRUGS (4)
  1. INFLIXIMAB [Suspect]
     Active Substance: INFLIXIMAB
     Indication: Arthritis
     Dosage: 6MG PER KG; (ADDITIONAL INFO: ROUTE:)
     Route: 042
  2. METHOTREXATE [Suspect]
     Active Substance: METHOTREXATE
     Indication: Arthritis
     Dosage: 10 MG, ONCE WEEKLY
     Route: 048
  3. FOLIC ACID [Concomitant]
     Active Substance: FOLIC ACID
     Indication: Adverse drug reaction
     Dosage: ADDITIONAL INFO: ROUTE:
  4. OLOPATADINE [Concomitant]
     Active Substance: OLOPATADINE
     Indication: Adverse drug reaction
     Dosage: DRUG: OPATANOL, REASON: EYE INFLAMMATION NOS - EYE DROP USED OCCASSIONALLY

REACTIONS (3)
  - Abortion spontaneous [Recovering/Resolving]
  - Maternal exposure before pregnancy [Unknown]
  - Off label use [Unknown]

NARRATIVE: CASE EVENT DATE: 20230208
